FAERS Safety Report 4428598-8 (Version None)
Quarter: 2004Q3

REPORT INFORMATION
  Report Type: 
  Country: None (occurrence: None)
  Receive Date: 20040816
  Receipt Date: 20040803
  Transmission Date: 20050211
  Serious: Yes (Hospitalization)
  Sender: FDA-Public Use
  Company Number: 2004-03009

PATIENT
  Age: 70 Year
  Sex: Male
  Weight: 83.9 kg

DRUGS (3)
  1. OXYTROL [Suspect]
     Indication: POLLAKIURIA
     Dosage: 1 PATCH, 2 /WEEK, TRANSDERMAL
     Route: 062
     Dates: start: 20040212, end: 20040716
  2. OXYTROL [Suspect]
     Indication: POLLAKIURIA
     Dosage: 1 PATCH, 2 /WEEK, TRANSDERMAL
     Route: 062
     Dates: start: 20040719, end: 20040720
  3. OXYTROL [Suspect]

REACTIONS (4)
  - DYSURIA [None]
  - ESCHERICHIA INFECTION [None]
  - KIDNEY INFECTION [None]
  - PHARMACEUTICAL PRODUCT COMPLAINT [None]
